FAERS Safety Report 25278583 (Version 3)
Quarter: 2025Q2

REPORT INFORMATION
  Report Type: Spontaneous
  Country: NO (occurrence: NO)
  Receive Date: 20250507
  Receipt Date: 20250620
  Transmission Date: 20250716
  Serious: Yes (Other)
  Sender: PFIZER
  Company Number: NO-PFM-2025-02187

PATIENT
  Age: 44 Year
  Sex: Male

DRUGS (8)
  1. BRAFTOVI [Suspect]
     Active Substance: ENCORAFENIB
     Indication: Malignant melanoma
     Route: 065
     Dates: start: 20220628, end: 202306
  2. BRAFTOVI [Suspect]
     Active Substance: ENCORAFENIB
     Route: 065
     Dates: start: 202306, end: 202504
  3. BRAFTOVI [Suspect]
     Active Substance: ENCORAFENIB
     Route: 065
     Dates: start: 2025
  4. BRAFTOVI [Suspect]
     Active Substance: ENCORAFENIB
     Route: 065
     Dates: start: 2025
  5. MEKTOVI [Suspect]
     Active Substance: BINIMETINIB
     Indication: Malignant melanoma
     Dosage: 45 MG, BID (2/DAY)
     Route: 065
     Dates: start: 20220628, end: 202306
  6. MEKTOVI [Suspect]
     Active Substance: BINIMETINIB
     Route: 065
     Dates: start: 202306, end: 202504
  7. MEKTOVI [Suspect]
     Active Substance: BINIMETINIB
     Route: 065
     Dates: start: 2025
  8. MEKTOVI [Suspect]
     Active Substance: BINIMETINIB
     Route: 065
     Dates: start: 2025

REACTIONS (2)
  - Cerebral haematoma [Recovered/Resolved]
  - Cerebral haemorrhage [Recovered/Resolved]

NARRATIVE: CASE EVENT DATE: 20250425
